FAERS Safety Report 9735529 (Version 2)
Quarter: 2015Q3

REPORT INFORMATION
  Report Type: Spontaneous
  Country: US (occurrence: US)
  Receive Date: 20131206
  Receipt Date: 20150804
  Transmission Date: 20151125
  Serious: No
  Sender: FDA-Public Use
  Company Number: US-GILEAD-2009-0023529

PATIENT
  Age: 71 Year
  Sex: Female
  Weight: 54.43 kg

DRUGS (18)
  1. OXYGEN. [Concomitant]
     Active Substance: OXYGEN
  2. METOLAZONE. [Concomitant]
     Active Substance: METOLAZONE
  3. IRON [Concomitant]
     Active Substance: IRON
  4. NEXIUM [Concomitant]
     Active Substance: ESOMEPRAZOLE MAGNESIUM
  5. ALDACTONE [Concomitant]
     Active Substance: SPIRONOLACTONE
  6. SYNTHROID [Concomitant]
     Active Substance: LEVOTHYROXINE SODIUM
  7. LETAIRIS [Suspect]
     Active Substance: AMBRISENTAN
     Indication: PULMONARY ARTERIAL HYPERTENSION
     Route: 048
     Dates: start: 20090501
  8. METOPROLOL [Concomitant]
     Active Substance: METOPROLOL
  9. IMODIUM [Concomitant]
     Active Substance: LOPERAMIDE HYDROCHLORIDE
  10. FLOLAN [Concomitant]
     Active Substance: EPOPROSTENOL SODIUM
  11. GLEEVEC [Concomitant]
     Active Substance: IMATINIB MESYLATE
  12. TYLENOL [Concomitant]
     Active Substance: ACETAMINOPHEN
  13. PROPAFENONE. [Concomitant]
     Active Substance: PROPAFENONE
  14. LASIX [Concomitant]
     Active Substance: FUROSEMIDE
  15. REVATIO [Concomitant]
     Active Substance: SILDENAFIL CITRATE
  16. TRACLEER [Concomitant]
     Active Substance: BOSENTAN
  17. NORVASC [Concomitant]
     Active Substance: AMLODIPINE BESYLATE
  18. DIGOXIN. [Concomitant]
     Active Substance: DIGOXIN

REACTIONS (1)
  - Unevaluable event [Unknown]
